FAERS Safety Report 13375598 (Version 1)
Quarter: 2017Q1

REPORT INFORMATION
  Report Type: Spontaneous
  Country: IE (occurrence: IE)
  Receive Date: 20170328
  Receipt Date: 20170328
  Transmission Date: 20170429
  Serious: Yes (Other)
  Sender: FDA-Public Use
  Company Number: IE-AMGEN-IRLSP2017037143

PATIENT
  Age: 57 Year
  Sex: Female
  Weight: 64 kg

DRUGS (1)
  1. REPATHA [Suspect]
     Active Substance: EVOLOCUMAB
     Indication: BLOOD CHOLESTEROL ABNORMAL
     Dosage: UNK
     Route: 058
     Dates: start: 20160115, end: 20161224

REACTIONS (7)
  - Abdominal distension [Recovered/Resolved]
  - Abdominal discomfort [Recovered/Resolved]
  - Asthenia [Recovered/Resolved]
  - Diarrhoea [Recovered/Resolved]
  - Lower respiratory tract infection [Recovered/Resolved]
  - Decreased appetite [Unknown]
  - Nausea [Unknown]

NARRATIVE: CASE EVENT DATE: 20160701
